FAERS Safety Report 4524468-5 (Version None)
Quarter: 2004Q4

REPORT INFORMATION
  Report Type: 
  Country: None (occurrence: None)
  Receive Date: 20041117
  Receipt Date: 20031015
  Transmission Date: 20050328
  Serious: Yes (Hospitalization)
  Sender: FDA-Public Use
  Company Number: US-JNJFOC-20030702440

PATIENT
  Age: 64 Year
  Sex: Female

DRUGS (7)
  1. LEVAQUIN [Suspect]
     Indication: URINARY TRACT INFECTION
     Dosage: 250 MG, 1 IN 1 DAY, ORAL
     Route: 048
     Dates: start: 20030502, end: 20030512
  2. DESRYEL (TRAZODONE HYDROCHLORIDE) [Concomitant]
  3. XANAX [Concomitant]
  4. LASIX [Concomitant]
  5. ULTRAM [Concomitant]
  6. DYAZIDE [Concomitant]
  7. LIPITOR [Concomitant]

REACTIONS (3)
  - DIZZINESS [None]
  - NAUSEA [None]
  - RETCHING [None]
